FAERS Safety Report 6163967-X (Version None)
Quarter: 2009Q2

REPORT INFORMATION
  Report Type: 
  Country: None (occurrence: None)
  Receive Date: 20090422
  Receipt Date: 20090410
  Transmission Date: 20091009
  Serious: Yes (Hospitalization, Other)
  Sender: FDA-Public Use
  Company Number: US-PFIZER INC-2009166529

PATIENT
  Sex: Male

DRUGS (12)
  1. LYRICA [Suspect]
     Indication: POST HERPETIC NEURALGIA
     Dosage: 300 MG, 2X/DAY
     Dates: start: 20080901, end: 20081001
  2. LYRICA [Interacting]
     Dosage: 200 MG, 1X/DAY
     Dates: start: 20071101, end: 20080901
  3. ZOCOR [Interacting]
     Dosage: 40 MG, 1X/DAY
  4. LISINOPRIL [Concomitant]
     Dosage: UNK
  5. WARFARIN SODIUM [Concomitant]
     Dosage: UNK
  6. COREG [Concomitant]
     Dosage: UNK
  7. NIACIN [Concomitant]
     Dosage: UNK
  8. FOSAMAX [Concomitant]
     Dosage: UNK
  9. POTASSIUM CHLORIDE [Concomitant]
     Dosage: UNK
  10. CALCIUM [Concomitant]
     Dosage: UNK
  11. LASIX [Concomitant]
     Dosage: UNK
  12. XANAX [Concomitant]
     Dosage: UNK

REACTIONS (5)
  - DRUG INTERACTION [None]
  - MALAISE [None]
  - RENAL FAILURE [None]
  - RHABDOMYOLYSIS [None]
  - VITAMIN B1 INCREASED [None]
